FAERS Safety Report 9710319 (Version 1)
Quarter: 2013Q4

REPORT INFORMATION
  Report Type: Spontaneous
  Country: US (occurrence: US)
  Receive Date: 20131126
  Receipt Date: 20131126
  Transmission Date: 20140711
  Serious: No
  Sender: FDA-Public Use
  Company Number: US-BRISTOL-MYERS SQUIBB COMPANY-18788042

PATIENT
  Age: 38 Year
  Sex: Female
  Weight: 74.37 kg

DRUGS (1)
  1. BYETTA [Suspect]
     Indication: TYPE 2 DIABETES MELLITUS
     Dosage: DOSE VALUE:INITIALLY GIVEN 5 MCG THEN INCREASED TO 10MCG BID
     Dates: start: 200810

REACTIONS (2)
  - Weight fluctuation [Unknown]
  - Decreased appetite [Unknown]
